FAERS Safety Report 20039708 (Version 8)
Quarter: 2025Q1

REPORT INFORMATION
  Report Type: Spontaneous
  Country: JP (occurrence: JP)
  Receive Date: 20211106
  Receipt Date: 20250328
  Transmission Date: 20250409
  Serious: Yes (Other)
  Sender: UNITED THERAPEUTICS
  Company Number: JP-UNITED THERAPEUTICS-UNT-2021-021467

PATIENT
  Age: 5 Year
  Sex: Male
  Weight: 18 kg

DRUGS (43)
  1. UNITUXIN [Suspect]
     Active Substance: DINUTUXIMAB
     Indication: Neuroblastoma
     Route: 041
     Dates: start: 20211018, end: 20211018
  2. UNITUXIN [Suspect]
     Active Substance: DINUTUXIMAB
     Route: 041
     Dates: start: 20211020, end: 20211022
  3. UNITUXIN [Suspect]
     Active Substance: DINUTUXIMAB
     Route: 041
     Dates: start: 20211129, end: 20211202
  4. UNITUXIN [Suspect]
     Active Substance: DINUTUXIMAB
     Route: 041
     Dates: start: 20220111, end: 20220114
  5. UNITUXIN [Suspect]
     Active Substance: DINUTUXIMAB
     Route: 041
     Dates: start: 20220214, end: 20220217
  6. UNITUXIN [Suspect]
     Active Substance: DINUTUXIMAB
     Route: 041
     Dates: start: 20220314, end: 20220317
  7. UNITUXIN [Suspect]
     Active Substance: DINUTUXIMAB
     Route: 041
     Dates: start: 20220418, end: 20220421
  8. TECELEUKIN [Suspect]
     Active Substance: TECELEUKIN
     Indication: Neuroblastoma
     Route: 041
  9. TECELEUKIN [Suspect]
     Active Substance: TECELEUKIN
     Route: 041
     Dates: start: 20211122, end: 20211125
  10. TECELEUKIN [Suspect]
     Active Substance: TECELEUKIN
     Route: 041
     Dates: start: 20211129, end: 20211202
  11. TECELEUKIN [Suspect]
     Active Substance: TECELEUKIN
     Route: 041
     Dates: start: 20220207, end: 20220210
  12. TECELEUKIN [Suspect]
     Active Substance: TECELEUKIN
     Route: 041
     Dates: start: 20220214, end: 20220217
  13. TECELEUKIN [Suspect]
     Active Substance: TECELEUKIN
     Route: 041
     Dates: start: 20220411, end: 20220414
  14. TECELEUKIN [Suspect]
     Active Substance: TECELEUKIN
     Route: 041
     Dates: start: 20220418, end: 20220421
  15. MORPHINE HYDROCHLORIDE [Suspect]
     Active Substance: MORPHINE HYDROCHLORIDE
     Indication: Pain
     Route: 041
     Dates: start: 20211018, end: 20211022
  16. MORPHINE HYDROCHLORIDE [Suspect]
     Active Substance: MORPHINE HYDROCHLORIDE
     Indication: Prophylaxis
     Route: 041
     Dates: start: 20211129, end: 20211202
  17. MORPHINE HYDROCHLORIDE [Suspect]
     Active Substance: MORPHINE HYDROCHLORIDE
     Route: 041
     Dates: start: 20220111, end: 20220114
  18. MORPHINE HYDROCHLORIDE [Suspect]
     Active Substance: MORPHINE HYDROCHLORIDE
     Route: 041
     Dates: start: 20220214, end: 20220217
  19. MORPHINE HYDROCHLORIDE [Suspect]
     Active Substance: MORPHINE HYDROCHLORIDE
     Route: 041
     Dates: start: 20220314, end: 20220317
  20. MORPHINE HYDROCHLORIDE [Suspect]
     Active Substance: MORPHINE HYDROCHLORIDE
     Route: 041
     Dates: start: 20220418, end: 20220421
  21. TRETINOIN [Suspect]
     Active Substance: TRETINOIN
     Indication: Neuroblastoma
     Dates: start: 20211026, end: 20211108
  22. TRETINOIN [Suspect]
     Active Substance: TRETINOIN
     Dates: start: 20211206, end: 20211219
  23. TRETINOIN [Suspect]
     Active Substance: TRETINOIN
     Dates: start: 20220118, end: 20220131
  24. TRETINOIN [Suspect]
     Active Substance: TRETINOIN
     Dates: start: 20220221, end: 20220306
  25. TRETINOIN [Suspect]
     Active Substance: TRETINOIN
     Dates: start: 20220321, end: 20220403
  26. TRETINOIN [Suspect]
     Active Substance: TRETINOIN
     Dates: start: 20220425, end: 20220508
  27. FILGRASTIM [Concomitant]
     Active Substance: FILGRASTIM
     Indication: Neuroblastoma
     Dosage: 5 ?G/KG, QD (CYCLE 1)
     Dates: start: 20211015, end: 20211028
  28. FILGRASTIM [Concomitant]
     Active Substance: FILGRASTIM
     Dosage: 5 ?G/KG, QD
     Dates: start: 20220108, end: 20220121
  29. FILGRASTIM [Concomitant]
     Active Substance: FILGRASTIM
     Dates: start: 20220311, end: 20220324
  30. HYDROXYZINE HYDROCHLORIDE [Concomitant]
     Active Substance: HYDROXYZINE HYDROCHLORIDE
     Indication: Prophylaxis
     Dates: start: 20211018, end: 20211021
  31. HYDROXYZINE HYDROCHLORIDE [Concomitant]
     Active Substance: HYDROXYZINE HYDROCHLORIDE
     Dates: start: 20211122, end: 20211122
  32. HYDROXYZINE HYDROCHLORIDE [Concomitant]
     Active Substance: HYDROXYZINE HYDROCHLORIDE
     Dates: start: 20211129, end: 20211203
  33. HYDROXYZINE HYDROCHLORIDE [Concomitant]
     Active Substance: HYDROXYZINE HYDROCHLORIDE
     Dates: start: 20220111, end: 20220114
  34. HYDROXYZINE HYDROCHLORIDE [Concomitant]
     Active Substance: HYDROXYZINE HYDROCHLORIDE
     Dates: start: 20220214, end: 20220217
  35. HYDROXYZINE HYDROCHLORIDE [Concomitant]
     Active Substance: HYDROXYZINE HYDROCHLORIDE
     Dates: start: 20220314, end: 20220317
  36. HYDROXYZINE HYDROCHLORIDE [Concomitant]
     Active Substance: HYDROXYZINE HYDROCHLORIDE
     Dates: start: 20220418, end: 20220421
  37. ACETAMINOPHEN [Concomitant]
     Active Substance: ACETAMINOPHEN
     Indication: Prophylaxis
     Dates: start: 20211018, end: 20211022
  38. ACETAMINOPHEN [Concomitant]
     Active Substance: ACETAMINOPHEN
     Dates: start: 20211122, end: 20211122
  39. ACETAMINOPHEN [Concomitant]
     Active Substance: ACETAMINOPHEN
     Dates: start: 20211129, end: 20211203
  40. ACETAMINOPHEN [Concomitant]
     Active Substance: ACETAMINOPHEN
     Dates: start: 20220111, end: 20220114
  41. ACETAMINOPHEN [Concomitant]
     Active Substance: ACETAMINOPHEN
     Dates: start: 20220214, end: 20220217
  42. ACETAMINOPHEN [Concomitant]
     Active Substance: ACETAMINOPHEN
     Dates: start: 20220314, end: 20220317
  43. ACETAMINOPHEN [Concomitant]
     Active Substance: ACETAMINOPHEN
     Dates: start: 20220418, end: 20220421

REACTIONS (34)
  - Neuroblastoma recurrent [Unknown]
  - Hypoxia [Recovered/Resolved]
  - Hypoxia [Recovered/Resolved]
  - Hypoxia [Recovered/Resolved]
  - Blood growth hormone abnormal [Unknown]
  - Abdominal pain [Recovered/Resolved]
  - Ventricular extrasystoles [Recovered/Resolved]
  - Pyrexia [Recovered/Resolved]
  - Fibrin D dimer increased [Recovered/Resolved]
  - Productive cough [Recovered/Resolved]
  - Oxygen saturation decreased [Recovered/Resolved]
  - Wheezing [Recovered/Resolved]
  - Hypoglycaemia [Recovered/Resolved]
  - Pyrexia [Recovered/Resolved]
  - C-reactive protein increased [Recovering/Resolving]
  - Aspartate aminotransferase increased [Recovered/Resolved]
  - Alanine aminotransferase increased [Recovered/Resolved]
  - Hypoglycaemia [Recovered/Resolved]
  - Cough [Not Recovered/Not Resolved]
  - Fibrin D dimer increased [Recovered/Resolved]
  - Visual impairment [Recovered/Resolved]
  - C-reactive protein increased [Recovered/Resolved]
  - C-reactive protein increased [Recovered/Resolved]
  - Pyrexia [Recovered/Resolved]
  - C-reactive protein increased [Recovered/Resolved]
  - Pyrexia [Recovered/Resolved]
  - Neutrophil count decreased [Recovered/Resolved]
  - C-reactive protein increased [Recovered/Resolved]
  - Alanine aminotransferase increased [Recovered/Resolved]
  - Aspartate aminotransferase increased [Recovered/Resolved]
  - Face oedema [Recovered/Resolved]
  - Photophobia [Recovered/Resolved]
  - Decreased appetite [Unknown]
  - Dermatitis [Unknown]

NARRATIVE: CASE EVENT DATE: 20211018
